FAERS Safety Report 8815771 (Version 1)
Quarter: 2012Q4

REPORT INFORMATION
  Report Type: 
  Country: GB (occurrence: GB)
  Receive Date: 20120928
  Receipt Date: 20120928
  Transmission Date: 20130627
  Serious: Yes (Other)
  Sender: FDA-Public Use
  Company Number: GB-ROCHE-1138549

PATIENT
  Age: 42 Year
  Sex: Male
  Weight: 72 kg

DRUGS (3)
  1. NAPROXEN [Suspect]
     Indication: BACK PAIN
     Route: 048
     Dates: start: 20120625, end: 20120702
  2. IBUPROFEN [Concomitant]
     Indication: BACK PAIN
     Route: 048
     Dates: start: 20120614, end: 20120625
  3. PARACETAMOL [Concomitant]
     Indication: BACK PAIN
     Route: 048

REACTIONS (3)
  - Anger [Recovered/Resolved]
  - Feeling abnormal [Recovered/Resolved]
  - Mood altered [Recovered/Resolved]
